FAERS Safety Report 6559830-2 (Version None)
Quarter: 2010Q1

REPORT INFORMATION
  Report Type: 
  Country: None (occurrence: None)
  Receive Date: 20100129
  Receipt Date: 20090916
  Transmission Date: 20100710
  Serious: No
  Sender: FDA-Public Use
  Company Number: US-ABBOTT-09P-163-0597614-00

PATIENT
  Sex: Female
  Weight: 68.1 kg

DRUGS (3)
  1. HUMIRA [Suspect]
     Indication: CROHN'S DISEASE
     Dates: start: 20090815, end: 20090815
  2. HUMIRA [Suspect]
     Dates: start: 20090829, end: 20090829
  3. HUMIRA [Suspect]
     Dates: start: 20090912

REACTIONS (2)
  - FATIGUE [None]
  - INJECTION SITE PAIN [None]
